FAERS Safety Report 9222542 (Version 1)
Quarter: 2013Q1

REPORT INFORMATION
  Report Type: Spontaneous
  Country: US (occurrence: None)
  Receive Date: 20120914
  Receipt Date: 20120914
  Transmission Date: 20140127
  Serious: Yes (Hospitalization, Other)
  Sender: FDA-Public Use
  Company Number: JPI-P-013379

PATIENT
  Age: 43 Year
  Sex: Female
  Weight: 74.84 kg

DRUGS (10)
  1. XYREM (500 MILLIGRAM/MILLILITERS, SOLUTION) (SODIUM OXYBATE) [Suspect]
     Indication: HYPERSOMNIA
     Dosage: 4.5 GM (2.25 GM,2 IN 1 D)
     Route: 048
     Dates: start: 20101002, end: 2010
  2. XYREM (500 MILLIGRAM/MILLILITERS, SOLUTION) (SODIUM OXYBATE) [Suspect]
     Indication: SOMNOLENCE
     Dosage: 4.5 GM (2.25 GM,2 IN 1 D)
     Route: 048
     Dates: start: 20101002, end: 2010
  3. ARIPIPRAZOLE [Suspect]
     Indication: PRODUCT USED FOR UNKNOWN INDICATION
     Dates: start: 2010, end: 2010
  4. VARENICLINE [Suspect]
     Indication: SMOKING CESSATION THERAPY
     Route: 048
     Dates: start: 20110223
  5. FLUPHENAZINE [Concomitant]
  6. NIFEDIPINE [Concomitant]
  7. METHYLPHENIDATE HYDROCHLORIDE [Concomitant]
  8. VITAMIN D [Concomitant]
  9. FOLIC ACID [Concomitant]
  10. UNSPECIFIED PSYCH MEDS [Concomitant]

REACTIONS (15)
  - Psychotic disorder [None]
  - Weight decreased [None]
  - Rash [None]
  - Muscle spasms [None]
  - Hypophagia [None]
  - Myalgia [None]
  - Dysgeusia [None]
  - Hypoaesthesia [None]
  - Insomnia [None]
  - Decreased appetite [None]
  - Therapeutic response decreased [None]
  - Sudden onset of sleep [None]
  - Somnolence [None]
  - Nausea [None]
  - Hypersomnia [None]
